FAERS Safety Report 21372542 (Version 2)
Quarter: 2022Q4

REPORT INFORMATION
  Report Type: Spontaneous
  Country: DE (occurrence: DE)
  Receive Date: 20220924
  Receipt Date: 20221013
  Transmission Date: 20230112
  Serious: Yes (Hospitalization)
  Sender: FDA-Public Use
  Company Number: None

PATIENT
  Age: 56 Year
  Sex: Male
  Weight: 66 kg

DRUGS (1)
  1. ESCITALOPRAM [Suspect]
     Active Substance: ESCITALOPRAM OXALATE
     Indication: Product used for unknown indication
     Dosage: 5 MG, 5 MG, EVERY 7 DAYS, TABLETS
     Route: 048

REACTIONS (5)
  - Product prescribing error [Unknown]
  - Anxiety [Unknown]
  - Panic reaction [Unknown]
  - Depression [Unknown]
  - Insomnia [Unknown]
